FAERS Safety Report 4514430-0 (Version None)
Quarter: 2004Q4

REPORT INFORMATION
  Report Type: 
  Country: None (occurrence: None)
  Receive Date: 20041126
  Receipt Date: 20041109
  Transmission Date: 20050328
  Serious: Yes (Life-Threatening)
  Sender: FDA-Public Use
  Company Number: PIR 0411015C

PATIENT
  Sex: Male
  Weight: 7 kg

DRUGS (5)
  1. TROPHAMINE [Suspect]
     Indication: CONGENITAL MEGACOLON
     Dosage: 14 GRAMS DAILY IN TPN
     Route: 051
     Dates: start: 20040615
  2. TROPHAMINE [Suspect]
     Indication: OBSTRUCTION
     Dosage: 14 GRAMS DAILY IN TPN
     Route: 051
     Dates: start: 20040615
  3. INTRALIPID 10% [Concomitant]
  4. DEXTROSE [Concomitant]
  5. CYSTEINE [Concomitant]

REACTIONS (4)
  - BACTERIAL INFECTION [None]
  - CATHETER RELATED INFECTION [None]
  - CHOLESTASIS [None]
  - CONDITION AGGRAVATED [None]
